FAERS Safety Report 5129658-9 (Version None)
Quarter: 2006Q4

REPORT INFORMATION
  Report Type: 
  Country: None (occurrence: None)
  Receive Date: 20061018
  Receipt Date: 20060810
  Transmission Date: 20070319
  Serious: Yes (Hospitalization, Other)
  Sender: FDA-Public Use
  Company Number: US-GLAXOSMITHKLINE-A0616133A

PATIENT
  Age: 72 Year
  Sex: Male
  Weight: 70 kg

DRUGS (3)
  1. EPIVIR-HBV [Suspect]
     Dosage: 150MG PER DAY
     Route: 048
     Dates: start: 19980101
  2. HERBS [Suspect]
  3. VITAMIN B50 [Concomitant]

REACTIONS (21)
  - ADVERSE EVENT [None]
  - ARTHRALGIA [None]
  - ARTHROPOD BITE [None]
  - ASTHENIA [None]
  - BLOOD CREATININE INCREASED [None]
  - BLOOD UREA INCREASED [None]
  - EAR PAIN [None]
  - HEADACHE [None]
  - HYPOAESTHESIA [None]
  - LYME DISEASE [None]
  - MALAISE [None]
  - MYALGIA [None]
  - POOR QUALITY DRUG ADMINISTERED [None]
  - PYREXIA [None]
  - RASH [None]
  - RASH GENERALISED [None]
  - ROCKY MOUNTAIN SPOTTED FEVER [None]
  - SWELLING [None]
  - THERAPEUTIC RESPONSE UNEXPECTED [None]
  - THROMBOCYTOPENIA [None]
  - TREATMENT NONCOMPLIANCE [None]
